FAERS Safety Report 9280901 (Version 1)
Quarter: 2013Q2

REPORT INFORMATION
  Report Type: Report from Study
  Country: CA (occurrence: CA)
  Receive Date: 20130509
  Receipt Date: 20130509
  Transmission Date: 20140414
  Serious: Yes (Hospitalization)
  Sender: FDA-Public Use
  Company Number: CA-JNJFOC-20130501222

PATIENT
  Age: 70 Year
  Sex: Female
  Weight: 62.2 kg

DRUGS (19)
  1. REMICADE [Suspect]
     Indication: RHEUMATOID ARTHRITIS
     Route: 042
     Dates: start: 20130430
  2. REMICADE [Suspect]
     Indication: RHEUMATOID ARTHRITIS
     Route: 042
     Dates: start: 2004
  3. LIPITOR [Concomitant]
     Route: 065
  4. SOTALOL [Concomitant]
     Route: 065
  5. RAMIPRIL [Concomitant]
     Route: 065
  6. AVAPRO [Concomitant]
     Route: 065
  7. FOLIC ACID [Concomitant]
     Route: 065
  8. OMEPRAZOLE [Concomitant]
     Route: 065
  9. ACETYLSALICYLIC ACID [Concomitant]
     Route: 065
  10. AMITRIPTYLINE [Concomitant]
     Route: 065
  11. PLAQUENIL [Concomitant]
     Route: 065
  12. COLCHICINE [Concomitant]
     Route: 065
  13. METHOTREXATE [Concomitant]
     Route: 065
  14. MORPHINE [Concomitant]
     Route: 065
  15. B VITAMIN COMPLEX [Concomitant]
     Route: 065
  16. POTASSIUM [Concomitant]
     Route: 065
  17. ALLOPURINOL [Concomitant]
     Route: 065
  18. DIDROCAL [Concomitant]
     Route: 065
  19. PREDNISONE [Concomitant]
     Route: 065

REACTIONS (3)
  - Pleural effusion [Unknown]
  - Hospitalisation [Unknown]
  - Coccidioidomycosis [Unknown]
